FAERS Safety Report 10681598 (Version 2)
Quarter: 2015Q3

REPORT INFORMATION
  Report Type: Report from Study
  Country: US (occurrence: US)
  Receive Date: 20141230
  Receipt Date: 20150703
  Transmission Date: 20151125
  Serious: Yes (Life-Threatening, Hospitalization, Other)
  Sender: FDA-Public Use
  Company Number: US-ROCHE-1514955

PATIENT
  Age: 40 Year
  Sex: Male
  Weight: 66.36 kg

DRUGS (25)
  1. RITUXAN [Suspect]
     Active Substance: RITUXIMAB
     Route: 042
     Dates: start: 20070426
  2. PERCOCET [Concomitant]
     Active Substance: ACETAMINOPHEN\OXYCODONE HYDROCHLORIDE
     Indication: PAIN
     Route: 065
  3. MOBIC [Concomitant]
     Active Substance: MELOXICAM
  4. VENOFER [Concomitant]
     Active Substance: IRON SUCROSE
     Route: 042
  5. KEPPRA [Concomitant]
     Active Substance: LEVETIRACETAM
  6. LOVENOX [Concomitant]
     Active Substance: ENOXAPARIN SODIUM
     Route: 065
  7. ATROPINE. [Concomitant]
     Active Substance: ATROPINE
     Route: 042
  8. RITUXAN [Suspect]
     Active Substance: RITUXIMAB
     Indication: AUTOIMMUNE HAEMOLYTIC ANAEMIA
     Route: 042
     Dates: start: 20070703, end: 20070703
  9. BACTRIM [Suspect]
     Active Substance: SULFAMETHOXAZOLE\TRIMETHOPRIM
     Indication: PRODUCT USED FOR UNKNOWN INDICATION
     Route: 065
  10. IVIG [Concomitant]
     Active Substance: HUMAN IMMUNOGLOBULIN G
  11. COUMADIN [Concomitant]
     Active Substance: WARFARIN SODIUM
     Dosage: 5MG MONDAY TO FRIDAY + 2.5MG SATURDAY + SUNDAY
     Route: 065
     Dates: start: 20070824
  12. TYLENOL [Concomitant]
     Active Substance: ACETAMINOPHEN
  13. OXYCODONE [Concomitant]
     Active Substance: OXYCODONE
  14. COUMADIN [Concomitant]
     Active Substance: WARFARIN SODIUM
  15. SOLU-CORTEF [Concomitant]
     Active Substance: HYDROCORTISONE SODIUM SUCCINATE
     Route: 042
  16. EPINEPHRINE. [Concomitant]
     Active Substance: EPINEPHRINE
     Route: 042
  17. PROTONIX (UNITED STATES) [Concomitant]
  18. INFED [Concomitant]
     Active Substance: IRON DEXTRAN
  19. METROGEL [Concomitant]
     Active Substance: METRONIDAZOLE
  20. EPOGEN [Concomitant]
     Active Substance: ERYTHROPOIETIN
     Route: 042
  21. BENADRYL [Concomitant]
     Active Substance: DIPHENHYDRAMINE HYDROCHLORIDE
     Route: 065
  22. AMBIEN [Concomitant]
     Active Substance: ZOLPIDEM TARTRATE
     Route: 065
  23. LOVENOX [Concomitant]
     Active Substance: ENOXAPARIN SODIUM
     Route: 065
  24. ANDROGEL [Concomitant]
     Active Substance: TESTOSTERONE
     Route: 065
  25. PERCOCET [Concomitant]
     Active Substance: ACETAMINOPHEN\OXYCODONE HYDROCHLORIDE

REACTIONS (42)
  - Respiratory distress [Unknown]
  - Hyperhidrosis [Unknown]
  - Jaundice [Unknown]
  - Joint stiffness [Unknown]
  - Myalgia [Recovered/Resolved]
  - Bone marrow failure [Recovering/Resolving]
  - Haemolysis [Unknown]
  - Muscle disorder [Unknown]
  - Lethargy [Unknown]
  - Hypogonadism [Unknown]
  - Weight decreased [Unknown]
  - Pancreatitis [Unknown]
  - Iron deficiency [Unknown]
  - Muscle spasms [Unknown]
  - Decreased appetite [Unknown]
  - Discomfort [Unknown]
  - Off label use [Unknown]
  - Peripheral swelling [Unknown]
  - Respiratory arrest [Recovered/Resolved]
  - Dyspnoea [Unknown]
  - Urinary incontinence [Unknown]
  - Asthenia [Unknown]
  - Sleep disorder [Unknown]
  - Pyrexia [Unknown]
  - Liver function test abnormal [Unknown]
  - Gait disturbance [Recovered/Resolved]
  - Rosacea [Unknown]
  - Diarrhoea [Unknown]
  - Butterfly rash [Recovered/Resolved]
  - Pain in extremity [Unknown]
  - Tachycardia [Unknown]
  - Pulse abnormal [Unknown]
  - Oedema peripheral [Recovered/Resolved]
  - Dry skin [Unknown]
  - Abdominal discomfort [Unknown]
  - Vitamin B12 deficiency [Unknown]
  - Psoriatic arthropathy [Unknown]
  - Blood testosterone decreased [Unknown]
  - Faecal incontinence [Unknown]
  - Autoimmune haemolytic anaemia [Unknown]
  - Deep vein thrombosis [Recovered/Resolved]
  - Arthralgia [Unknown]

NARRATIVE: CASE EVENT DATE: 20070703
